FAERS Safety Report 23645545 (Version 2)
Quarter: 2024Q3

REPORT INFORMATION
  Report Type: Report from Study
  Country: US (occurrence: US)
  Receive Date: 20240319
  Receipt Date: 20240805
  Transmission Date: 20241016
  Serious: No
  Sender: BOEHRINGER INGELHEIM
  Company Number: US-BoehringerIngelheim-2024-BI-015851

PATIENT
  Age: 63 Year
  Sex: Female

DRUGS (2)
  1. CYLTEZO [Suspect]
     Active Substance: ADALIMUMAB-ADBM
     Indication: Rheumatoid arthritis
     Route: 058
     Dates: start: 20240308
  2. CYLTEZO [Suspect]
     Active Substance: ADALIMUMAB-ADBM
     Indication: Psoriatic arthropathy

REACTIONS (2)
  - Diarrhoea [Recovered/Resolved]
  - Device malfunction [Unknown]

NARRATIVE: CASE EVENT DATE: 20240312
